FAERS Safety Report 25462581 (Version 1)
Quarter: 2025Q2

REPORT INFORMATION
  Report Type: Spontaneous
  Country: US (occurrence: US)
  Receive Date: 20250620
  Receipt Date: 20250620
  Transmission Date: 20250716
  Serious: No
  Sender: PFIZER
  Company Number: US-PFIZER INC-202500122742

PATIENT

DRUGS (12)
  1. ZITHROMAX [Suspect]
     Active Substance: AZITHROMYCIN DIHYDRATE
     Indication: Acute sinusitis
  2. ZITHROMAX [Suspect]
     Active Substance: AZITHROMYCIN DIHYDRATE
     Indication: Pyrexia
  3. ZITHROMAX [Suspect]
     Active Substance: AZITHROMYCIN DIHYDRATE
     Indication: Cough
  4. ZITHROMAX [Suspect]
     Active Substance: AZITHROMYCIN DIHYDRATE
     Indication: Ear pain
  5. AUGMENTIN [Suspect]
     Active Substance: AMOXICILLIN\CLAVULANATE POTASSIUM
     Indication: Acute sinusitis
  6. AUGMENTIN [Suspect]
     Active Substance: AMOXICILLIN\CLAVULANATE POTASSIUM
     Indication: Pyrexia
  7. AUGMENTIN [Suspect]
     Active Substance: AMOXICILLIN\CLAVULANATE POTASSIUM
     Indication: Cough
  8. AUGMENTIN [Suspect]
     Active Substance: AMOXICILLIN\CLAVULANATE POTASSIUM
     Indication: Ear pain
  9. OMNICEF [Suspect]
     Active Substance: CEFDINIR
     Indication: Acute sinusitis
  10. OMNICEF [Suspect]
     Active Substance: CEFDINIR
     Indication: Pyrexia
  11. OMNICEF [Suspect]
     Active Substance: CEFDINIR
     Indication: Cough
  12. OMNICEF [Suspect]
     Active Substance: CEFDINIR
     Indication: Ear pain

REACTIONS (4)
  - Ear discomfort [Unknown]
  - Ear pain [Unknown]
  - Disease recurrence [Unknown]
  - Tinnitus [Unknown]
